FAERS Safety Report 9781835 (Version 6)
Quarter: 2017Q1

REPORT INFORMATION
  Report Type: Report from Study
  Country: DE (occurrence: DE)
  Receive Date: 20131225
  Receipt Date: 20170311
  Transmission Date: 20170429
  Serious: Yes (Life-Threatening, Hospitalization)
  Sender: FDA-Public Use
  Company Number: DE-AMGEN-DEUCT2013089952

PATIENT
  Age: 54 Year
  Sex: Female
  Weight: 63 kg

DRUGS (3)
  1. PEGYLATED LIPOSOMAL DOXORUBICIN HYDROCHLORIDE [Suspect]
     Active Substance: DOXORUBICIN HYDROCHLORIDE
     Indication: OVARIAN CANCER RECURRENT
     Dosage: 30 MG/M2, UNK
     Route: 042
     Dates: start: 20130911, end: 20131204
  2. CARBOPLATIN. [Suspect]
     Active Substance: CARBOPLATIN
     Indication: OVARIAN CANCER METASTATIC
     Dosage: UNK
     Route: 042
     Dates: start: 20130911, end: 20131204
  3. PANITUMUMAB [Suspect]
     Active Substance: PANITUMUMAB
     Indication: OVARIAN CANCER RECURRENT
     Dosage: 6 MG/KG, UNK
     Route: 042
     Dates: start: 20130911

REACTIONS (1)
  - Thrombocytopenia [Recovered/Resolved]

NARRATIVE: CASE EVENT DATE: 20131219
